FAERS Safety Report 24338859 (Version 3)
Quarter: 2025Q1

REPORT INFORMATION
  Report Type: Report from Study
  Country: US (occurrence: US)
  Receive Date: 20240919
  Receipt Date: 20250117
  Transmission Date: 20250408
  Serious: Yes (Other)
  Sender: EMD SERONO INC
  Company Number: US-Merck Healthcare KGaA-2024044398

PATIENT
  Age: 55 Year
  Sex: Female
  Weight: 66 kg

DRUGS (3)
  1. MAVENCLAD [Suspect]
     Active Substance: CLADRIBINE
     Indication: Multiple sclerosis
     Dates: start: 20231004, end: 20231008
  2. MAVENCLAD [Suspect]
     Active Substance: CLADRIBINE
     Dates: start: 20231103, end: 20231107
  3. MOUNJARO [Concomitant]
     Active Substance: TIRZEPATIDE
     Indication: Diabetes mellitus

REACTIONS (6)
  - Lymphadenopathy [Recovering/Resolving]
  - Intrapulmonary lymphadenopathy [Recovering/Resolving]
  - Hepatic lesion [Recovering/Resolving]
  - Neoplasm malignant [Unknown]
  - Autoimmune disorder [Unknown]
  - Ill-defined disorder [Unknown]

NARRATIVE: CASE EVENT DATE: 20240612
